FAERS Safety Report 20353376 (Version 9)
Quarter: 2022Q2

REPORT INFORMATION
  Report Type: Report from Study
  Country: CA (occurrence: CA)
  Receive Date: 20220119
  Receipt Date: 20220425
  Transmission Date: 20220721
  Serious: Yes (Hospitalization, Other)
  Sender: FDA-Public Use
  Company Number: CA-BEH-2021139419

PATIENT
  Age: 65 Year
  Sex: Female
  Weight: 58.5 kg

DRUGS (11)
  1. HAEMATE P [Suspect]
     Active Substance: ANTIHEMOPHILIC FACTOR HUMAN
     Indication: Von Willebrand^s disease
     Dosage: 1000 INTERNATIONAL UNIT, BIW
     Route: 042
     Dates: start: 20210121
  2. HAEMATE P [Suspect]
     Active Substance: ANTIHEMOPHILIC FACTOR HUMAN
     Dosage: 2000 INTERNATIONAL UNIT, BIW
     Route: 042
     Dates: start: 20210121
  3. HAEMATE P [Suspect]
     Active Substance: ANTIHEMOPHILIC FACTOR HUMAN
     Dosage: 2195 INTERNATIONAL UNIT
     Route: 065
  4. HAEMATE P [Suspect]
     Active Substance: ANTIHEMOPHILIC FACTOR HUMAN
     Dosage: 2000 INTERNATIONAL UNIT, TIW
     Route: 042
  5. HAEMATE P [Suspect]
     Active Substance: ANTIHEMOPHILIC FACTOR HUMAN
     Dosage: 2000 INTERNATIONAL UNIT, TIW
     Route: 042
     Dates: start: 20210121
  6. HAEMATE P [Suspect]
     Active Substance: ANTIHEMOPHILIC FACTOR HUMAN
     Dosage: 2000 INTERNATIONAL UNIT, BIW
     Route: 042
     Dates: start: 20210121
  7. HAEMATE P [Suspect]
     Active Substance: ANTIHEMOPHILIC FACTOR HUMAN
     Dosage: 2000 INTERNATIONAL UNIT, BIW
     Route: 042
     Dates: start: 20210121
  8. HAEMATE P [Suspect]
     Active Substance: ANTIHEMOPHILIC FACTOR HUMAN
     Dosage: 1905 INTERNATIONAL UNIT
     Route: 042
  9. HAEMATE P [Suspect]
     Active Substance: ANTIHEMOPHILIC FACTOR HUMAN
     Dosage: 1905 INTERNATIONAL UNIT
     Route: 042
  10. HAEMATE P [Suspect]
     Active Substance: ANTIHEMOPHILIC FACTOR HUMAN
     Dosage: 1905 INTERNATIONAL UNIT [1095 IU REPORTED, SIC!]
     Route: 042
  11. HUMAN IMMUNOGLOBULIN G [Concomitant]
     Active Substance: HUMAN IMMUNOGLOBULIN G
     Indication: Product used for unknown indication
     Dosage: UNK UNK, QMT (EVERY 3 WEEKS)
     Route: 042

REACTIONS (37)
  - Sepsis [Unknown]
  - Pneumonia [Unknown]
  - Haemoglobin decreased [Unknown]
  - Peripheral swelling [Unknown]
  - Dyspnoea [Unknown]
  - Gait disturbance [Unknown]
  - No adverse event [Unknown]
  - Product dose omission issue [Unknown]
  - Pleuritic pain [Unknown]
  - Nausea [Unknown]
  - Chest pain [Unknown]
  - Malaise [Unknown]
  - Tongue haemorrhage [Recovered/Resolved]
  - Swelling [Recovering/Resolving]
  - Contusion [Recovering/Resolving]
  - Dizziness [Unknown]
  - Mass [Unknown]
  - Contusion [Not Recovered/Not Resolved]
  - Tenderness [Unknown]
  - Skin laceration [Unknown]
  - Skin haemorrhage [Unknown]
  - Volume blood decreased [Unknown]
  - Dizziness postural [Unknown]
  - Malaise [Unknown]
  - Haemorrhage [Unknown]
  - Dyspnoea [Unknown]
  - Chest discomfort [Unknown]
  - Asthenia [Unknown]
  - Malaise [Unknown]
  - SARS-CoV-2 test positive [Unknown]
  - Cough [Unknown]
  - Fatigue [Unknown]
  - Pneumonia [Unknown]
  - Malaise [Unknown]
  - Pain in extremity [Unknown]
  - Peripheral swelling [Unknown]
  - Post procedural haemorrhage [Unknown]

NARRATIVE: CASE EVENT DATE: 20211227
